FAERS Safety Report 23796075 (Version 1)
Quarter: 2024Q2

REPORT INFORMATION
  Report Type: Spontaneous
  Country: US (occurrence: US)
  Receive Date: 20240429
  Receipt Date: 20240429
  Transmission Date: 20240716
  Serious: No
  Sender: FDA-Public Use
  Company Number: US-BAUSCHBL-2024BNL026048

PATIENT
  Age: 46 Year
  Sex: Female
  Weight: 127.01 kg

DRUGS (3)
  1. TROPICAMIDE [Suspect]
     Active Substance: TROPICAMIDE
     Indication: Mydriasis
     Route: 047
     Dates: start: 20240422, end: 20240422
  2. REMICADE [Concomitant]
     Active Substance: INFLIXIMAB
     Indication: Product used for unknown indication
     Route: 065
  3. HYDROCHLOROTHIAZIDE [Concomitant]
     Active Substance: HYDROCHLOROTHIAZIDE
     Indication: Product used for unknown indication
     Route: 065

REACTIONS (8)
  - Lacrimation increased [Recovering/Resolving]
  - Ocular discomfort [Recovering/Resolving]
  - Swelling face [Not Recovered/Not Resolved]
  - Erythema [Recovering/Resolving]
  - Burning sensation [Recovering/Resolving]
  - Eye disorder [Recovering/Resolving]
  - Photophobia [Recovering/Resolving]
  - Headache [Recovering/Resolving]

NARRATIVE: CASE EVENT DATE: 20240422
